FAERS Safety Report 4571771-9 (Version None)
Quarter: 2005Q1

REPORT INFORMATION
  Report Type: 
  Country: None (occurrence: None)
  Receive Date: 20050207
  Receipt Date: 20000724
  Transmission Date: 20050727
  Serious: Yes (Hospitalization, Other)
  Sender: FDA-Public Use
  Company Number: US-MERCK-00072278

PATIENT
  Age: 55 Year
  Sex: Female
  Weight: 101 kg

DRUGS (4)
  1. VIOXX [Suspect]
     Indication: SCIATICA
     Route: 048
     Dates: start: 20000522, end: 20000525
  2. VIOXX [Suspect]
     Indication: ARTHRALGIA
     Route: 048
     Dates: start: 20000522, end: 20000525
  3. AMARYL [Concomitant]
     Route: 065
     Dates: start: 20000522
  4. NORVASC [Concomitant]
     Indication: HYPERTENSION
     Route: 048

REACTIONS (11)
  - ADVERSE EVENT [None]
  - BLOOD PRESSURE INCREASED [None]
  - BUNDLE BRANCH BLOCK [None]
  - GASTRIC ULCER [None]
  - HYPERGLYCAEMIA [None]
  - LABORATORY TEST ABNORMAL [None]
  - MYOCARDIAL INFARCTION [None]
  - NAUSEA [None]
  - PAIN IN EXTREMITY [None]
  - TACHYCARDIA [None]
  - VOMITING [None]
